FAERS Safety Report 9847271 (Version 1)
Quarter: 2014Q1

REPORT INFORMATION
  Report Type: Spontaneous
  Country: US (occurrence: US)
  Receive Date: 20140127
  Receipt Date: 20140127
  Transmission Date: 20141002
  Serious: Yes (Hospitalization)
  Sender: FDA-Public Use
  Company Number: US-DYAX CORP.-2013DX000051

PATIENT
  Sex: Female
  Weight: 64.92 kg

DRUGS (2)
  1. KALBITOR [Suspect]
     Indication: HEREDITARY ANGIOEDEMA
     Dates: start: 2012
  2. CINRYZE [Concomitant]
     Indication: HEREDITARY ANGIOEDEMA
     Dates: end: 2013

REACTIONS (1)
  - Hereditary angioedema [Recovered/Resolved]
